FAERS Safety Report 25406434 (Version 1)
Quarter: 2025Q2

REPORT INFORMATION
  Report Type: Spontaneous
  Country: KR (occurrence: KR)
  Receive Date: 20250606
  Receipt Date: 20250606
  Transmission Date: 20250717
  Serious: Yes (Other)
  Sender: IPSEN BIOPHARMACEUTICALS, INC.
  Company Number: None

PATIENT
  Age: 69 Year
  Sex: Male
  Weight: 78 kg

DRUGS (2)
  1. ONIVYDE [Suspect]
     Active Substance: IRINOTECAN HYDROCHLORIDE
     Indication: Bile duct cancer
     Dosage: 129.9 MG, QD
     Route: 065
     Dates: start: 20240228, end: 20240228
  2. FLUOROURACIL [Suspect]
     Active Substance: FLUOROURACIL
     Indication: Bile duct cancer
     Dosage: 2292 MG, QD
     Route: 065
     Dates: start: 20240228, end: 20240229

REACTIONS (2)
  - Neutropenia [Recovered/Resolved]
  - Thrombocytopenia [Recovering/Resolving]

NARRATIVE: CASE EVENT DATE: 20240315
